FAERS Safety Report 9138006 (Version 1)
Quarter: 2013Q1

REPORT INFORMATION
  Report Type: Spontaneous
  Country: US (occurrence: US)
  Receive Date: 20130304
  Receipt Date: 20130304
  Transmission Date: 20140127
  Serious: No
  Sender: FDA-Public Use
  Company Number: US-ABBOTT-12P-163-0938978-00

PATIENT
  Age: 72 Year
  Sex: Male
  Weight: 88.08 kg

DRUGS (4)
  1. ANDROGEL 1% [Suspect]
     Indication: BLOOD TESTOSTERONE DECREASED
     Dates: start: 2012
  2. UNKNOWN MEDICATION [Concomitant]
     Indication: BLOOD PRESSURE
  3. UNKNOWN MEDICATION [Concomitant]
     Indication: BLOOD CHOLESTEROL
  4. MELATONIN [Concomitant]
     Indication: INSOMNIA

REACTIONS (2)
  - Insomnia [Not Recovered/Not Resolved]
  - Initial insomnia [Not Recovered/Not Resolved]
